FAERS Safety Report 4870446-6 (Version None)
Quarter: 2006Q1

REPORT INFORMATION
  Report Type: 
  Country: None (occurrence: None)
  Receive Date: 20060103
  Receipt Date: 20050627
  Transmission Date: 20060701
  Serious: No
  Sender: FDA-Public Use
  Company Number: US-BRISTOL-MYERS SQUIBB COMPANY-13016977

PATIENT

DRUGS (1)
  1. TRAZODONE HCL [Suspect]
     Indication: DEPRESSION

REACTIONS (1)
  - NEUTROPENIA [None]
